FAERS Safety Report 16719382 (Version 1)
Quarter: 2019Q3

REPORT INFORMATION
  Report Type: Spontaneous
  Country: US (occurrence: US)
  Receive Date: 20190702
  Receipt Date: 20190702
  Transmission Date: 20191005
  Serious: No
  Sender: FDA-Public Use
  Company Number: None

PATIENT
  Age: 79 Year
  Sex: Female

DRUGS (12)
  1. URSODIOL. [Concomitant]
     Active Substance: URSODIOL
  2. OCALIVA [Suspect]
     Active Substance: OBETICHOLIC ACID
     Indication: BILIARY CIRRHOSIS
     Route: 048
     Dates: start: 201804
  3. DILTIAZEM. [Concomitant]
     Active Substance: DILTIAZEM
  4. FIBER [Concomitant]
     Active Substance: PSYLLIUM HUSK
  5. PAROXETINE. [Concomitant]
     Active Substance: PAROXETINE
  6. VITAMIN D [Concomitant]
     Active Substance: VITAMIN D NOS
  7. GLUCOS/CA/D [Concomitant]
  8. SAM-E [Concomitant]
     Active Substance: ADEMETIONINE
  9. ELIQUIS [Concomitant]
     Active Substance: APIXABAN
  10. PROBIOTIC [Concomitant]
     Active Substance: PROBIOTICS NOS
  11. LEVOTHYROXIN [Concomitant]
     Active Substance: LEVOTHYROXINE
  12. BITAMIN V-12 [Concomitant]

REACTIONS (1)
  - Pruritus [None]

NARRATIVE: CASE EVENT DATE: 201906
